FAERS Safety Report 9036365 (Version 1)
Quarter: 2013Q1

REPORT INFORMATION
  Report Type: Report from Study
  Country: US (occurrence: US)
  Receive Date: 20130129
  Receipt Date: 20130129
  Transmission Date: 20140127
  Serious: No
  Sender: FDA-Public Use
  Company Number: US-ABBOTT-12P-163-0892810-00

PATIENT
  Age: 60 Year
  Sex: Male

DRUGS (8)
  1. HUMIRA 40 MG/0.8 ML PEN [Suspect]
     Indication: CROHN^S DISEASE
  2. CRESTOR [Concomitant]
     Indication: PRODUCT USED FOR UNKNOWN INDICATION
  3. ULORIC [Concomitant]
     Indication: GOUT
  4. ASACOL [Concomitant]
     Indication: PRODUCT USED FOR UNKNOWN INDICATION
  5. ASACOL [Concomitant]
  6. ASACOL [Concomitant]
  7. ASACOL [Concomitant]
  8. DICLOFENAC SODIUM [Concomitant]
     Indication: BURSITIS

REACTIONS (3)
  - Injection site erythema [Recovered/Resolved]
  - Eye swelling [Recovered/Resolved]
  - Bursitis [Recovered/Resolved]
